FAERS Safety Report 5535941-5 (Version None)
Quarter: 2007Q4

REPORT INFORMATION
  Report Type: 
  Country: None (occurrence: None)
  Receive Date: 20071206
  Receipt Date: 20070824
  Transmission Date: 20080405
  Serious: Yes (Other)
  Sender: FDA-Public Use
  Company Number: US-AMGEN-KDL240320

PATIENT
  Sex: Female

DRUGS (1)
  1. ENBREL [Suspect]
     Indication: JUVENILE ARTHRITIS
     Route: 058
     Dates: start: 20060308

REACTIONS (3)
  - PAPILLOMA VIRAL INFECTION [None]
  - SKIN ULCER [None]
  - STAPHYLOCOCCAL INFECTION [None]
